FAERS Safety Report 15853845 (Version 3)
Quarter: 2019Q4

REPORT INFORMATION
  Report Type: Spontaneous
  Country: US (occurrence: US)
  Receive Date: 20190122
  Receipt Date: 20191015
  Transmission Date: 20200122
  Serious: No
  Sender: FDA-Public Use
  Company Number: US-PFIZER INC-2019027516

PATIENT
  Age: 60 Year
  Sex: Female
  Weight: 124.2 kg

DRUGS (7)
  1. LYRICA [Suspect]
     Active Substance: PREGABALIN
     Indication: BACK PAIN
     Dosage: 150 MG, 2X/DAY
     Route: 048
  2. LYRICA [Suspect]
     Active Substance: PREGABALIN
     Dosage: 75 MG, 4X/DAY
  3. METFORMIN [Concomitant]
     Active Substance: METFORMIN HYDROCHLORIDE
     Indication: DIABETES MELLITUS
     Dosage: 2000 MG, DAILY (4 TABLETS DAILY)
  4. CYMBALTA [Concomitant]
     Active Substance: DULOXETINE HYDROCHLORIDE
     Indication: PAIN
     Dosage: 20 MG, DAILY
  5. LYRICA [Suspect]
     Active Substance: PREGABALIN
     Indication: COMPLEX REGIONAL PAIN SYNDROME
     Dosage: UNK, CYCLIC (6 MONTHS ON, 6 MONTHS OFF)
     Dates: end: 201810
  6. LYRICA [Suspect]
     Active Substance: PREGABALIN
     Dosage: 225 MG, DAILY
  7. CYMBALTA [Concomitant]
     Active Substance: DULOXETINE HYDROCHLORIDE
     Indication: DEPRESSION

REACTIONS (3)
  - Blood cholesterol increased [Unknown]
  - Hypertension [Unknown]
  - Drug ineffective [Not Recovered/Not Resolved]
